FAERS Safety Report 6638260-9 (Version None)
Quarter: 2010Q1

REPORT INFORMATION
  Report Type: 
  Country: None (occurrence: None)
  Receive Date: 20100301
  Receipt Date: 20090416
  Transmission Date: 20100710
  Serious: Yes (Hospitalization)
  Sender: FDA-Public Use
  Company Number: RB-14453-2009

PATIENT
  Age: 31 Year
  Sex: Male

DRUGS (2)
  1. SUBOXONE [Suspect]
     Indication: DRUG DEPENDENCE
     Dosage: 16 MG QD SUBLINGUAL, 2 MG BID SUBLINGUAL
     Route: 060
     Dates: start: 20090101, end: 20090415
  2. SUBOXONE [Suspect]
     Indication: DRUG DEPENDENCE
     Dosage: 16 MG QD SUBLINGUAL, 2 MG BID SUBLINGUAL
     Route: 060
     Dates: start: 20090416

REACTIONS (1)
  - JAUNDICE [None]
